FAERS Safety Report 24999142 (Version 1)
Quarter: 2025Q1

REPORT INFORMATION
  Report Type: Spontaneous
  Country: US (occurrence: US)
  Receive Date: 20250222
  Receipt Date: 20250222
  Transmission Date: 20250409
  Serious: No
  Sender: SANOFI AVENTIS
  Company Number: US-SA-2025SA046831

PATIENT
  Age: 75 Year
  Sex: Female
  Weight: 42 kg

DRUGS (19)
  1. DUPIXENT [Suspect]
     Active Substance: DUPILUMAB
     Indication: Dermatitis atopic
     Dosage: 300 MG, QOW
     Route: 058
  2. ALPRAZOLAM [Concomitant]
     Active Substance: ALPRAZOLAM
  3. BUDESONIDE [Concomitant]
     Active Substance: BUDESONIDE
  4. CALCIUM [Concomitant]
     Active Substance: CALCIUM
  5. VITAMINS [Concomitant]
     Active Substance: VITAMINS
  6. ELIQUIS [Concomitant]
     Active Substance: APIXABAN
  7. ESTRACE [Concomitant]
     Active Substance: ESTRADIOL
  8. HYDROXYZINE [Concomitant]
     Active Substance: HYDROXYZINE HYDROCHLORIDE
  9. LANSOPRAZOLE [Concomitant]
     Active Substance: LANSOPRAZOLE
  10. LEVOTHYROXINE [Concomitant]
     Active Substance: LEVOTHYROXINE
  11. LIPITOR [Concomitant]
     Active Substance: ATORVASTATIN CALCIUM
  12. MELATONIN [Concomitant]
     Active Substance: MELATONIN
  13. METOPROLOL [Concomitant]
     Active Substance: METOPROLOL
  14. PAROXETINE [Concomitant]
     Active Substance: PAROXETINE
  15. PERMETHRIN [Concomitant]
     Active Substance: PERMETHRIN
  16. PREBIOTICS NOS [Concomitant]
  17. PRIMIDONE [Concomitant]
     Active Substance: PRIMIDONE
  18. PROMETHAZINE [Concomitant]
     Active Substance: PROMETHAZINE HYDROCHLORIDE
  19. TRIAMCINOLONE [Concomitant]
     Active Substance: TRIAMCINOLONE

REACTIONS (1)
  - Rash [Unknown]

NARRATIVE: CASE EVENT DATE: 20250211
